FAERS Safety Report 9718253 (Version 1)
Quarter: 2013Q4

REPORT INFORMATION
  Report Type: Spontaneous
  Country: US (occurrence: US)
  Receive Date: 20131125
  Receipt Date: 20131125
  Transmission Date: 20140711
  Serious: No
  Sender: FDA-Public Use
  Company Number: US-VIVUS-2013V1000113

PATIENT
  Age: 69 Year
  Sex: Female
  Weight: 85.35 kg

DRUGS (9)
  1. QSYMIA 3.75MG/23MG [Suspect]
     Indication: WEIGHT DECREASED
     Dosage: DAILY DOSE: 1 CAPSULE,
     Route: 048
     Dates: start: 201212, end: 201301
  2. QSYMIA 7.5MG/46MG [Suspect]
     Indication: WEIGHT DECREASED
     Dosage: DAILY DOSE: 1 CAPSULE,
     Route: 048
     Dates: start: 201301
  3. METFORMIN [Concomitant]
     Indication: TYPE 2 DIABETES MELLITUS
     Route: 048
     Dates: start: 1998
  4. VICTOZA [Concomitant]
     Indication: TYPE 2 DIABETES MELLITUS
     Dates: start: 2012
  5. GLYBURIDE [Concomitant]
     Indication: TYPE 2 DIABETES MELLITUS
     Route: 048
     Dates: start: 2012
  6. LISINOPRIL [Concomitant]
     Indication: HYPERTENSION
     Route: 048
  7. VYTORIN [Concomitant]
     Indication: BLOOD CHOLESTEROL
     Route: 048
     Dates: start: 2010
  8. VENLAFAXINE [Concomitant]
     Indication: DEPRESSION
     Route: 048
     Dates: start: 2010
  9. CORICIDIN [Concomitant]
     Indication: NASOPHARYNGITIS
     Route: 048
     Dates: start: 201301

REACTIONS (2)
  - Ageusia [Not Recovered/Not Resolved]
  - Nasopharyngitis [Recovered/Resolved]
